FAERS Safety Report 7298022-9 (Version None)
Quarter: 2011Q1

REPORT INFORMATION
  Report Type: 
  Country: None (occurrence: None)
  Receive Date: 20110217
  Receipt Date: 20110210
  Transmission Date: 20110831
  Serious: No
  Sender: FDA-Public Use
  Company Number: US-PFIZER INC-2011031111

PATIENT
  Sex: Female

DRUGS (1)
  1. VERAPAMIL HCL [Suspect]

REACTIONS (1)
  - DRUG INTOLERANCE [None]
